FAERS Safety Report 15700823 (Version 1)
Quarter: 2018Q4

REPORT INFORMATION
  Report Type: Spontaneous
  Country: US (occurrence: US)
  Receive Date: 20181207
  Receipt Date: 20181207
  Transmission Date: 20190205
  Serious: Yes (Death, Other)
  Sender: FDA-Public Use
  Company Number: US-IMPAX LABORATORIES, LLC-2018-IPXL-03998

PATIENT
  Age: 72 Year
  Sex: Male

DRUGS (1)
  1. RYTARY [Suspect]
     Active Substance: CARBIDOPA\LEVODOPA
     Indication: PARKINSON^S DISEASE
     Dosage: 61.25MG/245MG 11 DOSAGE FORM, DAILY
     Route: 048
     Dates: start: 2015

REACTIONS (5)
  - Cardiac arrest [Fatal]
  - Parkinson^s disease [Fatal]
  - Dementia [Unknown]
  - Adverse event [Unknown]
  - Seizure [Unknown]
